FAERS Safety Report 9017027 (Version 3)
Quarter: 2013Q3

REPORT INFORMATION
  Report Type: Report from Study
  Country: JP (occurrence: JP)
  Receive Date: 20130117
  Receipt Date: 20130703
  Transmission Date: 20140515
  Serious: Yes (Hospitalization)
  Sender: FDA-Public Use
  Company Number: JP-009507513-1301JPN005418

PATIENT
  Age: 39 Year
  Sex: Male
  Weight: 70 kg

DRUGS (5)
  1. PEGINTRON [Suspect]
     Indication: HEPATIC CIRRHOSIS
     Dosage: 50 MICROGRAM, QW
     Route: 058
     Dates: start: 20120910, end: 20121031
  2. REBETOL [Suspect]
     Indication: HEPATIC CIRRHOSIS
     Dosage: 400 MG, QD
     Route: 048
     Dates: start: 20120910, end: 20121031
  3. PARIET [Concomitant]
     Indication: PROPHYLAXIS
     Dosage: 10 MG, QD, FORMULATION:POR
     Route: 048
     Dates: start: 20120910, end: 20121031
  4. URSO [Concomitant]
     Indication: HEPATIC CIRRHOSIS
     Dosage: 100 MG, TID
     Route: 048
     Dates: start: 20120910, end: 20121031
  5. GLYCYRON [Concomitant]
     Indication: HEPATIC CIRRHOSIS
     Dosage: DAILY DOSAGE UNKNOWN
     Route: 048
     Dates: start: 20120910, end: 20121031

REACTIONS (1)
  - Rash [Recovering/Resolving]
